FAERS Safety Report 4543903-X (Version None)
Quarter: 2005Q1

REPORT INFORMATION
  Report Type: 
  Country: None (occurrence: None)
  Receive Date: 20050104
  Receipt Date: 20020131
  Transmission Date: 20050727
  Serious: Yes (Hospitalization, Other)
  Sender: FDA-Public Use
  Company Number: 200210478FR

PATIENT
  Age: 61 Year
  Sex: Female
  Weight: 82 kg

DRUGS (7)
  1. ARAVA [Suspect]
     Indication: RHEUMATOID ARTHRITIS
     Route: 048
     Dates: start: 20000101, end: 20020322
  2. PREDNISONE TAB [Concomitant]
     Indication: RHEUMATOID ARTHRITIS
     Route: 048
  3. SPIRONOLACTONE [Concomitant]
  4. FUROSEMIDE [Concomitant]
  5. MOXONIDINE [Concomitant]
     Indication: HYPERTENSION
  6. ATORVASTATIN [Concomitant]
     Indication: HYPERCHOLESTEROLAEMIA
     Dates: end: 20020301
  7. PREDNISOLONE [Concomitant]
     Indication: RHEUMATOID ARTHRITIS
     Route: 048

REACTIONS (24)
  - ASTHENIA [None]
  - CARDIAC MURMUR [None]
  - CYANOSIS [None]
  - DIABETES MELLITUS INSULIN-DEPENDENT [None]
  - DYSAESTHESIA [None]
  - ERYTHEMA INDURATUM [None]
  - GENERAL PHYSICAL HEALTH DETERIORATION [None]
  - HYPERCHOLESTEROLAEMIA [None]
  - HYPERLIPIDAEMIA [None]
  - HYPERTRIGLYCERIDAEMIA [None]
  - HYPONATRAEMIA [None]
  - HYPOTHYROIDISM [None]
  - INSOMNIA [None]
  - NIGHT SWEATS [None]
  - OEDEMA PERIPHERAL [None]
  - PAIN [None]
  - PANNICULITIS [None]
  - PERIPHERAL COLDNESS [None]
  - PROTEIN TOTAL DECREASED [None]
  - SKIN DISORDER [None]
  - TACHYCARDIA [None]
  - THROMBOCYTOPENIA [None]
  - TRANSAMINASES INCREASED [None]
  - VENOUS INSUFFICIENCY [None]
